APPROVED DRUG PRODUCT: SODIUM THIOSULFATE
Active Ingredient: SODIUM THIOSULFATE
Strength: 12.5GM/50ML (250MG/ML)
Dosage Form/Route: SOLUTION;INTRAVENOUS
Application: N203923 | Product #001
Applicant: HOPE PHARMACEUTICALS
Approved: Feb 14, 2012 | RLD: Yes | RS: Yes | Type: RX

PATENTS:
Patent 9345724 | Expires: Jul 7, 2030
Patent 8496973 | Expires: Mar 29, 2031
Patent 10479686 | Expires: Jul 7, 2030
Patent 11753301 | Expires: Feb 10, 2030
Patent 9585912 | Expires: Jul 7, 2030
Patent 12304813 | Expires: Feb 10, 2030